FAERS Safety Report 22391196 (Version 1)
Quarter: 2023Q2

REPORT INFORMATION
  Report Type: Report from Study
  Country: US (occurrence: US)
  Receive Date: 20230601
  Receipt Date: 20230601
  Transmission Date: 20230721
  Serious: Yes (Hospitalization)
  Sender: FDA-Public Use
  Company Number: US-JNJFOC-20230559806

PATIENT
  Age: 25 Year
  Sex: Female

DRUGS (3)
  1. SPRAVATO [Suspect]
     Active Substance: ESKETAMINE
     Indication: Depression
     Dosage: 56 MG, 28 DOSES
     Dates: start: 20191209, end: 20201229
  2. SPRAVATO [Suspect]
     Active Substance: ESKETAMINE
     Dosage: 84 MG, 68 DOSES
     Dates: start: 20210108, end: 20230509
  3. SPRAVATO [Suspect]
     Active Substance: ESKETAMINE
     Dosage: RECENT DOSE
     Dates: start: 20230523, end: 20230523

REACTIONS (3)
  - Chest discomfort [Unknown]
  - Nausea [Unknown]
  - Vomiting [Unknown]

NARRATIVE: CASE EVENT DATE: 20230523
